FAERS Safety Report 16629106 (Version 1)
Quarter: 2019Q3

REPORT INFORMATION
  Report Type: Spontaneous
  Country: US (occurrence: US)
  Receive Date: 20190725
  Receipt Date: 20190725
  Transmission Date: 20191004
  Serious: Yes (Other)
  Sender: FDA-Public Use
  Company Number: US-STRIDES ARCOLAB LIMITED-2019SP000786

PATIENT
  Age: 60 Year
  Sex: Male

DRUGS (3)
  1. MYCOPHENOLATE MOFETIL. [Suspect]
     Active Substance: MYCOPHENOLATE MOFETIL
     Indication: SMALL INTESTINE TRANSPLANT
     Dosage: 1000 MG PER DAY
     Route: 065
  2. TACROLIMUS. [Suspect]
     Active Substance: TACROLIMUS
     Indication: SMALL INTESTINE TRANSPLANT
     Dosage: 0.5 MG PER DAY
     Route: 065
  3. HYDROCORTISONE. [Suspect]
     Active Substance: HYDROCORTISONE
     Indication: SMALL INTESTINE TRANSPLANT
     Dosage: 10 MG PER DAY
     Route: 065

REACTIONS (2)
  - Skin papilloma [Recovered/Resolved]
  - Off label use [Unknown]
